FAERS Safety Report 5105042-9 (Version None)
Quarter: 2006Q3

REPORT INFORMATION
  Report Type: 
  Country: None (occurrence: None)
  Receive Date: 20060914
  Receipt Date: 20060807
  Transmission Date: 20061208
  Serious: Yes (Life-Threatening)
  Sender: FDA-Public Use
  Company Number: US-BOEHRINGER INGELHEIM PHARMACEUTICALS, INC.-2006-BP-09022BP

PATIENT
  Age: 59 Year
  Sex: Female
  Weight: 102.06 kg

DRUGS (4)
  1. ATROVENT [Suspect]
     Indication: UPPER RESPIRATORY TRACT INFECTION
     Route: 045
     Dates: end: 20040101
  2. ATROVENT [Suspect]
     Indication: RHINITIS
  3. TOPROL-XL [Concomitant]
     Dates: start: 20030101
  4. ALLEGRA [Concomitant]
     Dates: start: 19960101

REACTIONS (1)
  - BRONCHOSPASM PARADOXICAL [None]
